FAERS Safety Report 24019328 (Version 2)
Quarter: 2024Q3

REPORT INFORMATION
  Report Type: Report from Study
  Country: KR (occurrence: KR)
  Receive Date: 20240627
  Receipt Date: 20240709
  Transmission Date: 20241017
  Serious: Yes (Hospitalization, Other)
  Sender: SAMSUNG BIOEPIS
  Company Number: KR-SAMSUNG BIOEPIS-SB-2024-18995

PATIENT
  Age: 69 Year
  Sex: Female
  Weight: 48 kg

DRUGS (24)
  1. ADALIMUMAB [Suspect]
     Active Substance: ADALIMUMAB\ISOPROPYL ALCOHOL
     Indication: Rheumatoid arthritis
     Route: 058
     Dates: start: 20240226, end: 20240527
  2. ADALIMUMAB [Suspect]
     Active Substance: ADALIMUMAB\ISOPROPYL ALCOHOL
     Dosage: 40MG/0.4ML
     Route: 058
     Dates: start: 20240627
  3. VITIS VINIFERA (GRAPE) FLOWER EXTRACT [Concomitant]
     Active Substance: VITIS VINIFERA FLOWERING TOP
     Indication: Oedema
     Route: 048
     Dates: start: 20220621
  4. CELECOXIB [Concomitant]
     Active Substance: CELECOXIB
     Indication: Rheumatoid arthritis
     Route: 048
     Dates: start: 20230207
  5. HYDROCHLOROTHIAZIDE [Concomitant]
     Active Substance: HYDROCHLOROTHIAZIDE
     Indication: Oedema
     Route: 048
     Dates: start: 20190617
  6. EZETIMIBE\ROSUVASTATIN CALCIUM [Concomitant]
     Active Substance: EZETIMIBE\ROSUVASTATIN CALCIUM
     Indication: Dyslipidaemia
     Dosage: 1 TAB QOD PO
     Route: 048
     Dates: start: 20240226
  7. EZETIMIBE\ROSUVASTATIN CALCIUM [Concomitant]
     Active Substance: EZETIMIBE\ROSUVASTATIN CALCIUM
     Dosage: 1 TABLET DAILY.
     Route: 048
     Dates: start: 20220503, end: 20240225
  8. METHYLPREDNISOLONE [Concomitant]
     Active Substance: METHYLPREDNISOLONE
     Indication: Rheumatoid arthritis
     Route: 048
  9. METHYLPREDNISOLONE [Concomitant]
     Active Substance: METHYLPREDNISOLONE
     Route: 048
  10. SPIRONOLACTONE [Concomitant]
     Active Substance: SPIRONOLACTONE
     Indication: Oedema
     Route: 048
     Dates: start: 20240401
  11. ESOMEPRAZOLE MAGNESIUM [Concomitant]
     Active Substance: ESOMEPRAZOLE MAGNESIUM
     Indication: Chronic gastritis
     Route: 048
     Dates: start: 20240422
  12. ALMAGATE [Concomitant]
     Active Substance: ALMAGATE
     Indication: Chronic gastritis
     Route: 048
     Dates: start: 20240422
  13. METHOTREXATE [Concomitant]
     Active Substance: METHOTREXATE
     Indication: Rheumatoid arthritis
     Route: 048
     Dates: start: 20190617, end: 20240415
  14. FOLIC ACID [Concomitant]
     Active Substance: FOLIC ACID
     Indication: Prophylaxis
     Route: 048
     Dates: start: 20141224, end: 20240421
  15. METHYLPREDNISOLONE [Concomitant]
     Active Substance: METHYLPREDNISOLONE
     Indication: Rheumatoid arthritis
     Route: 048
     Dates: start: 20230224, end: 20240324
  16. LEFLUNOMIDE [Concomitant]
     Active Substance: LEFLUNOMIDE
     Indication: Rheumatoid arthritis
     Route: 048
     Dates: start: 20180328, end: 20240225
  17. FUROSEMIDE [Concomitant]
     Active Substance: FUROSEMIDE
     Indication: Oedema
     Route: 048
     Dates: start: 20240401, end: 20240519
  18. L-ISOLEUCINE [Concomitant]
     Indication: Liver function test abnormal
     Route: 048
  19. L-LEUCINE [Concomitant]
     Indication: Liver function test abnormal
     Route: 048
     Dates: start: 20240226
  20. L-VALINE [Concomitant]
     Indication: Liver function test abnormal
     Route: 048
     Dates: start: 20240226
  21. carnitine orotate, liver extract, adenine hydrochloride, pyridoxine hy [Concomitant]
     Indication: Liver function test abnormal
     Route: 048
     Dates: start: 20240219
  22. Mg trihydrate salt of chenodeoxycholic acid and ursodeoxycholic acid [Concomitant]
     Indication: Liver function test abnormal
     Route: 048
     Dates: start: 20240219
  23. ALMAGATE [Concomitant]
     Active Substance: ALMAGATE
     Indication: Chronic gastritis
     Route: 048
     Dates: start: 20240422
  24. URSODIOL [Concomitant]
     Active Substance: URSODIOL
     Indication: Liver function test abnormal
     Route: 048
     Dates: start: 20230905, end: 20240225

REACTIONS (1)
  - Autoimmune hepatitis [Recovered/Resolved]

NARRATIVE: CASE EVENT DATE: 20240603
